FAERS Safety Report 12290952 (Version 3)
Quarter: 2017Q3

REPORT INFORMATION
  Report Type: Spontaneous
  Country: US (occurrence: US)
  Receive Date: 20160421
  Receipt Date: 20170821
  Transmission Date: 20171127
  Serious: Yes (Hospitalization)
  Sender: FDA-Public Use
  Company Number: US-JNJFOC-20160417761

PATIENT
  Sex: Male

DRUGS (6)
  1. ABCIXIMAB [Suspect]
     Active Substance: ABCIXIMAB
     Indication: PERCUTANEOUS CORONARY INTERVENTION
     Route: 065
  2. HEPARIN [Suspect]
     Active Substance: HEPARIN SODIUM
     Indication: PERCUTANEOUS CORONARY INTERVENTION
     Route: 065
  3. PRASUGREL. [Suspect]
     Active Substance: PRASUGREL
     Indication: ANTIPLATELET THERAPY
     Route: 065
  4. TICAGRELOR. [Suspect]
     Active Substance: TICAGRELOR
     Indication: ANTIPLATELET THERAPY
     Route: 065
  5. CLOPIDOGREL [Suspect]
     Active Substance: CLOPIDOGREL BISULFATE
     Indication: ANTIPLATELET THERAPY
     Route: 065
  6. ASPIRIN. [Suspect]
     Active Substance: ASPIRIN
     Indication: ANTIPLATELET THERAPY
     Route: 065

REACTIONS (1)
  - Haemorrhage [Unknown]
